FAERS Safety Report 21565729 (Version 1)
Quarter: 2022Q4

REPORT INFORMATION
  Report Type: Spontaneous
  Country: GB (occurrence: GB)
  Receive Date: 20221108
  Receipt Date: 20221108
  Transmission Date: 20230113
  Serious: Yes (Other)
  Sender: FDA-Public Use
  Company Number: GB-MHRA-MED-202211040143191910-GZRVT

PATIENT
  Age: 19 Year
  Sex: Female

DRUGS (1)
  1. LANSOPRAZOLE [Suspect]
     Active Substance: LANSOPRAZOLE
     Indication: Nausea
     Dosage: UNK
     Route: 065
     Dates: end: 202209

REACTIONS (1)
  - Alcohol poisoning [Recovered/Resolved]
